FAERS Safety Report 7437943-0 (Version None)
Quarter: 2011Q2

REPORT INFORMATION
  Report Type: 
  Country: None (occurrence: None)
  Receive Date: 20110426
  Receipt Date: 20110401
  Transmission Date: 20111010
  Serious: No
  Sender: FDA-Public Use
  Company Number: US-B.I. PHARMACEUTICALS,INC./RIDGEFIELD-2011-BP-09899BP

PATIENT
  Age: 66 Year
  Sex: Female

DRUGS (3)
  1. MICARDIS [Suspect]
     Dosage: 40 MG
     Route: 048
     Dates: start: 20110202
  2. VITAMIN D [Concomitant]
     Indication: VITAMIN D DECREASED
  3. MICARDIS [Suspect]
     Dosage: 80 MG
     Route: 048
     Dates: end: 20110201

REACTIONS (9)
  - DEFAECATION URGENCY [None]
  - TREMOR [None]
  - MIGRAINE [None]
  - BLOOD PRESSURE FLUCTUATION [None]
  - FREQUENT BOWEL MOVEMENTS [None]
  - DYSPEPSIA [None]
  - PALPITATIONS [None]
  - WEIGHT DECREASED [None]
  - BLOOD URINE PRESENT [None]
